FAERS Safety Report 16806914 (Version 1)
Quarter: 2019Q3

REPORT INFORMATION
  Report Type: Spontaneous
  Country: US (occurrence: US)
  Receive Date: 20190724
  Receipt Date: 20190724
  Transmission Date: 20191005
  Serious: No
  Sender: FDA-Public Use
  Company Number: None

PATIENT
  Age: 64 Year
  Sex: Female

DRUGS (2)
  1. AFINITOR [Suspect]
     Active Substance: EVEROLIMUS
     Route: 048
     Dates: start: 201904, end: 20190724
  2. EXEMESTANE. [Concomitant]
     Active Substance: EXEMESTANE

REACTIONS (1)
  - Hepatic lesion [None]

NARRATIVE: CASE EVENT DATE: 20190724
